FAERS Safety Report 8368734-4 (Version None)
Quarter: 2012Q2

REPORT INFORMATION
  Report Type: 
  Country: None (occurrence: None)
  Receive Date: 20120518
  Receipt Date: 20120510
  Transmission Date: 20120825
  Serious: No
  Sender: FDA-Public Use
  Company Number: US-BIOGENIDEC-2012BI016839

PATIENT
  Sex: Female

DRUGS (5)
  1. GILENYA [Concomitant]
     Indication: MULTIPLE SCLEROSIS
  2. TYSABRI [Suspect]
     Route: 042
     Dates: start: 20120509
  3. TYSABRI [Suspect]
     Route: 042
     Dates: start: 20100317, end: 20110601
  4. TYSABRI [Suspect]
     Indication: MULTIPLE SCLEROSIS
     Route: 042
     Dates: start: 20050201, end: 20050201
  5. TYSABRI [Suspect]
     Route: 042
     Dates: start: 20071129, end: 20081204

REACTIONS (1)
  - GASTROINTESTINAL DISORDER [None]
